FAERS Safety Report 5268195-8 (Version None)
Quarter: 2007Q1

REPORT INFORMATION
  Report Type: 
  Country: None (occurrence: None)
  Receive Date: 20070319
  Receipt Date: 20070309
  Transmission Date: 20070707
  Serious: Yes (Death, Hospitalization, Other)
  Sender: FDA-Public Use
  Company Number: PHEH2006US15208

PATIENT
  Age: 82 Year
  Sex: Male
  Weight: 68.027 kg

DRUGS (12)
  1. STARLIX [Suspect]
     Indication: DIABETES MELLITUS NON-INSULIN-DEPENDENT
     Dosage: 120 MG, AC TID
     Route: 048
     Dates: start: 20020101, end: 20040210
  2. INSULIN [Concomitant]
     Indication: DIABETES MELLITUS NON-INSULIN-DEPENDENT
     Dosage: 50 U, QD
     Route: 058
     Dates: start: 20010701, end: 20050101
  3. LANTUS [Concomitant]
     Indication: DIABETES MELLITUS NON-INSULIN-DEPENDENT
     Dosage: 50 U, QD
     Route: 058
     Dates: start: 20010701, end: 20050101
  4. LIPITOR [Concomitant]
  5. ASPIRIN [Concomitant]
  6. COREG [Concomitant]
  7. IMDUR [Concomitant]
  8. LASIX [Concomitant]
  9. ALLEGRA [Concomitant]
  10. LISINOPRIL [Concomitant]
  11. ATROVENT [Concomitant]
  12. HYDROXYZINE [Concomitant]

REACTIONS (5)
  - CARDIO-RESPIRATORY ARREST [None]
  - DEPRESSED LEVEL OF CONSCIOUSNESS [None]
  - HYPOGLYCAEMIA [None]
  - HYPOGLYCAEMIC COMA [None]
  - MUSCLE TWITCHING [None]
